FAERS Safety Report 5058249-3 (Version None)
Quarter: 2006Q2

REPORT INFORMATION
  Report Type: 
  Country: None (occurrence: None)
  Receive Date: 20060622
  Receipt Date: 20060112
  Transmission Date: 20061013
  Serious: Yes (Other)
  Sender: FDA-Public Use
  Company Number: US-JNJFOC-20060103230

PATIENT
  Age: 39 Year
  Sex: Male
  Weight: 107.9561 kg

DRUGS (2)
  1. FENTANYL [Suspect]
     Indication: PAIN
     Dosage: SEE IMAGE
     Route: 062
     Dates: start: 20051001, end: 20051228
  2. FENTANYL [Suspect]
     Indication: PAIN
     Dosage: SEE IMAGE
     Route: 062
     Dates: start: 20060106

REACTIONS (3)
  - MOOD SWINGS [None]
  - VOMITING [None]
  - WEIGHT DECREASED [None]
